FAERS Safety Report 7660115-1 (Version None)
Quarter: 2011Q3

REPORT INFORMATION
  Report Type: 
  Country: None (occurrence: None)
  Receive Date: 20110805
  Receipt Date: 20110725
  Transmission Date: 20111222
  Serious: Yes (Other)
  Sender: FDA-Public Use
  Company Number: PHHY2011US54625

PATIENT
  Sex: Female
  Weight: 76 kg

DRUGS (6)
  1. METFORMIN HCL [Concomitant]
     Dosage: 500 MG, BID
     Route: 048
  2. PRAVASTATIN SODIUM [Concomitant]
     Dosage: 20 MG, DAILY
     Route: 048
  3. EXJADE [Suspect]
     Indication: BLOOD IRON INCREASED
     Dosage: 1000 MG, BID
     Route: 048
     Dates: start: 20110608
  4. METOPROLOL TARTRATE [Concomitant]
     Dosage: 25 MG, BID
     Route: 048
  5. HYDREA [Concomitant]
  6. EXJADE [Suspect]
     Dosage: 500 MG, BID
     Route: 048

REACTIONS (11)
  - NIGHT SWEATS [None]
  - FAECES DISCOLOURED [None]
  - ABDOMINAL PAIN [None]
  - VOMITING [None]
  - HAEMOGLOBIN DECREASED [None]
  - HYPOPHAGIA [None]
  - PRURITUS [None]
  - DECREASED APPETITE [None]
  - TOXICITY TO VARIOUS AGENTS [None]
  - NAUSEA [None]
  - DIARRHOEA [None]
